FAERS Safety Report 13648891 (Version 1)
Quarter: 2017Q2

REPORT INFORMATION
  Report Type: Spontaneous
  Country: US (occurrence: US)
  Receive Date: 20170613
  Receipt Date: 20170613
  Transmission Date: 20170830
  Serious: Yes (Hospitalization, Other)
  Sender: FDA-Public Use
  Company Number: US-B.I. PHARMACEUTICALS,INC./RIDGEFIELD-2017-BI-032144

PATIENT
  Sex: Male

DRUGS (1)
  1. TWYNSTA [Suspect]
     Active Substance: AMLODIPINE BESYLATE\TELMISARTAN
     Indication: HYPERTENSION
     Dosage: FORM STRENGTH: 80 MG / 5 MG;
     Route: 048
     Dates: start: 201611, end: 20170514

REACTIONS (16)
  - Blood sodium decreased [Not Recovered/Not Resolved]
  - Lymphoedema [Not Recovered/Not Resolved]
  - Blood creatine phosphokinase MB increased [Not Recovered/Not Resolved]
  - Restlessness [Not Recovered/Not Resolved]
  - Weight decreased [Not Recovered/Not Resolved]
  - Carbon dioxide abnormal [Not Recovered/Not Resolved]
  - Agitation [Not Recovered/Not Resolved]
  - White blood cell count increased [Not Recovered/Not Resolved]
  - Rhabdomyolysis [Not Recovered/Not Resolved]
  - Muscle fatigue [Not Recovered/Not Resolved]
  - Pain [Not Recovered/Not Resolved]
  - Blood creatine phosphokinase increased [Not Recovered/Not Resolved]
  - Dyspnoea [Not Recovered/Not Resolved]
  - Anxiety [Not Recovered/Not Resolved]
  - Fatigue [Not Recovered/Not Resolved]
  - Muscular weakness [Not Recovered/Not Resolved]

NARRATIVE: CASE EVENT DATE: 201612
